FAERS Safety Report 16790492 (Version 6)
Quarter: 2020Q3

REPORT INFORMATION
  Report Type: Spontaneous
  Country: US (occurrence: US)
  Receive Date: 20190910
  Receipt Date: 20200929
  Transmission Date: 20201102
  Serious: Yes (Hospitalization)
  Sender: FDA-Public Use
  Company Number: US-PFIZER INC-2019385677

PATIENT
  Age: 65 Year
  Sex: Male
  Weight: 57.61 kg

DRUGS (4)
  1. RAPAMUNE [Suspect]
     Active Substance: SIROLIMUS
     Indication: STEM CELL TRANSPLANT
     Dosage: 0.5 MG, 1X/DAY (M W F)
     Route: 048
     Dates: start: 20150828
  2. RAPAMUNE [Suspect]
     Active Substance: SIROLIMUS
     Indication: GRAFT VERSUS HOST DISEASE
     Dosage: 1 MG, 1X/DAY (T TH S S)
     Dates: end: 2019
  3. RAPAMUNE [Suspect]
     Active Substance: SIROLIMUS
     Indication: IMMUNOSUPPRESSION
     Dosage: 0.5 MG, 2X/DAY (M W F)
  4. RAPAMUNE [Suspect]
     Active Substance: SIROLIMUS
     Dosage: 0.5 MG, 1X/DAY (T TH S S)

REACTIONS (5)
  - Intentional dose omission [Unknown]
  - Off label use [Unknown]
  - Product use in unapproved indication [Unknown]
  - Drug level decreased [Unknown]
  - Laboratory test abnormal [Unknown]

NARRATIVE: CASE EVENT DATE: 201508
